FAERS Safety Report 5165483-0 (Version None)
Quarter: 2006Q4

REPORT INFORMATION
  Report Type: 
  Country: None (occurrence: None)
  Receive Date: 20061206
  Receipt Date: 20061124
  Transmission Date: 20070319
  Serious: Yes (Hospitalization)
  Sender: FDA-Public Use
  Company Number: PHRM2006FR03154

PATIENT
  Age: 91 Year
  Sex: Male
  Weight: 51 kg

DRUGS (5)
  1. ALKERAN [Concomitant]
     Indication: MULTIPLE MYELOMA
     Dates: start: 20040301, end: 20040901
  2. CORTANCYL [Concomitant]
     Indication: MULTIPLE MYELOMA
     Dates: start: 20040301, end: 20040901
  3. CORTANCYL [Concomitant]
     Dosage: 5 MG DAILY
     Dates: start: 20060101
  4. DEXAMETHASONE [Concomitant]
     Indication: MULTIPLE MYELOMA
     Dosage: 20 MG PER DAY/4 DAYS/MONTH
     Dates: start: 20051101, end: 20051201
  5. ZOMETA [Suspect]
     Indication: MULTIPLE MYELOMA
     Dosage: 4 MG, QMO
     Route: 042
     Dates: start: 20040301

REACTIONS (3)
  - OSTEONECROSIS [None]
  - SCINTIGRAPHY [None]
  - TOOTH INFECTION [None]
